FAERS Safety Report 24275754 (Version 1)
Quarter: 2024Q3

REPORT INFORMATION
  Report Type: Spontaneous
  Country: KR (occurrence: KR)
  Receive Date: 20240903
  Receipt Date: 20240903
  Transmission Date: 20241017
  Serious: Yes (Other)
  Sender: NOVARTIS
  Company Number: KR-002147023-NVSC2024KR174418

PATIENT
  Age: 59 Year
  Sex: Female

DRUGS (4)
  1. ASCIMINIB [Suspect]
     Active Substance: ASCIMINIB
     Indication: Product used for unknown indication
     Dosage: 80 MG
     Route: 065
  2. ASCIMINIB [Suspect]
     Active Substance: ASCIMINIB
     Dosage: 40 MG
     Route: 065
  3. NILOTINIB [Suspect]
     Active Substance: NILOTINIB
     Indication: Product used for unknown indication
     Dosage: 300 MG, BID
     Route: 065
  4. DASATINIB [Concomitant]
     Active Substance: DASATINIB
     Indication: Product used for unknown indication
     Dosage: 100 MG, QD
     Route: 065
     Dates: start: 202109

REACTIONS (4)
  - Pancreatitis [Unknown]
  - Retinal haemorrhage [Unknown]
  - Low density lipoprotein increased [Unknown]
  - Blood creatine increased [Unknown]
